FAERS Safety Report 10149163 (Version 1)
Quarter: 2014Q2

REPORT INFORMATION
  Report Type: Spontaneous
  Country: US (occurrence: None)
  Receive Date: 20140501
  Receipt Date: 20140501
  Transmission Date: 20141212
  Serious: Yes (Hospitalization)
  Sender: FDA-Public Use
  Company Number: None

PATIENT
  Age: 65 Year
  Sex: Female

DRUGS (9)
  1. INSULIN [Suspect]
     Indication: HYPERGLYCAEMIA
     Dosage: GLARGINE 40 UNITS, ONCE, BC
     Route: 058
     Dates: start: 20130510, end: 20130510
  2. ASCORBIC ACID [Concomitant]
  3. CALCIUM + VITAMIN D [Concomitant]
  4. DOCUSATE [Concomitant]
  5. FERROUS SULFATE [Concomitant]
  6. FUROSEMIDE [Concomitant]
  7. INSULIN ASPART [Concomitant]
  8. LANSOPRAZOLE [Concomitant]
  9. LEVOTHYROXINE [Concomitant]

REACTIONS (2)
  - Convulsion [None]
  - Blood glucose decreased [None]
